FAERS Safety Report 24894160 (Version 7)
Quarter: 2025Q3

REPORT INFORMATION
  Report Type: Report from Study
  Country: US (occurrence: US)
  Receive Date: 20250128
  Receipt Date: 20250929
  Transmission Date: 20251020
  Serious: Yes (Hospitalization)
  Sender: SUNOVION
  Company Number: US-SUMITOMO PHARMA SWITZERLAND GMBH-2025SPA000498

PATIENT
  Age: 71 Year
  Sex: Male

DRUGS (12)
  1. ORGOVYX [Suspect]
     Active Substance: RELUGOLIX
     Indication: Prostate cancer
     Dosage: 360 MG, SINGLE
     Route: 048
     Dates: start: 202412, end: 202412
  2. ORGOVYX [Suspect]
     Active Substance: RELUGOLIX
     Dosage: 120 MG, QD
     Route: 048
     Dates: start: 202412
  3. FOLIC ACID [Concomitant]
     Active Substance: FOLIC ACID
  4. VITAMIN D3 [Concomitant]
     Active Substance: CHOLECALCIFEROL
     Route: 048
  5. HYDROCHLOROTHIAZIDE [Concomitant]
     Active Substance: HYDROCHLOROTHIAZIDE
     Route: 048
  6. IRON [Concomitant]
     Active Substance: IRON
  7. LOSARTAN [Concomitant]
     Active Substance: LOSARTAN
     Route: 048
  8. OXYCONTIN [Concomitant]
     Active Substance: OXYCODONE HYDROCHLORIDE
  9. GABAPENTIN [Concomitant]
     Active Substance: GABAPENTIN
  10. METHOCARBAMOL [Concomitant]
     Active Substance: METHOCARBAMOL
  11. CIPRO [Concomitant]
     Active Substance: CIPROFLOXACIN HYDROCHLORIDE
  12. LINEZOLID [Concomitant]
     Active Substance: LINEZOLID

REACTIONS (8)
  - Fistula repair [Unknown]
  - Haematological infection [Unknown]
  - Blood iron decreased [Unknown]
  - Dry skin [Unknown]
  - Hot flush [Unknown]
  - Therapy interrupted [Recovered/Resolved]
  - Product distribution issue [Recovered/Resolved]
  - Product dose omission issue [Recovered/Resolved]
